FAERS Safety Report 16259202 (Version 3)
Quarter: 2019Q2

REPORT INFORMATION
  Report Type: Spontaneous
  Country: JP (occurrence: JP)
  Receive Date: 20190501
  Receipt Date: 20190529
  Transmission Date: 20190711
  Serious: Yes (Other)
  Sender: FDA-Public Use
  Company Number: JP-AMGEN-JPNSP2019067478

PATIENT
  Age: 70 Year
  Sex: Female

DRUGS (5)
  1. ROMIPLATE [Suspect]
     Active Substance: ROMIPLOSTIM
     Indication: IMMUNE THROMBOCYTOPENIC PURPURA
     Dosage: UNK UNK, QWK
     Route: 058
     Dates: start: 20171214
  2. ROMIPLATE [Suspect]
     Active Substance: ROMIPLOSTIM
     Dosage: 7 MICROGRAM/KILOGRAM
     Route: 058
     Dates: start: 20190418
  3. ROMIPLATE [Suspect]
     Active Substance: ROMIPLOSTIM
     Dosage: UNK UNK, QWK
     Route: 058
  4. ROMIPLATE [Suspect]
     Active Substance: ROMIPLOSTIM
     Dosage: 7 MICROGRAM/KILOGRAM
     Route: 058
     Dates: start: 20190425
  5. ROMIPLATE [Suspect]
     Active Substance: ROMIPLOSTIM
     Dosage: 7 MICROGRAM/KILOGRAM
     Route: 058
     Dates: start: 20190502

REACTIONS (1)
  - Haemorrhage subcutaneous [Recovered/Resolved]

NARRATIVE: CASE EVENT DATE: 20190420
